FAERS Safety Report 5912579-9 (Version None)
Quarter: 2008Q4

REPORT INFORMATION
  Report Type: 
  Country: None (occurrence: None)
  Receive Date: 20081008
  Receipt Date: 20080930
  Transmission Date: 20090506
  Serious: Yes (Life-Threatening, Hospitalization)
  Sender: FDA-Public Use
  Company Number: CA-SANOFI-SYNTHELABO-F01200501341

PATIENT
  Sex: Male

DRUGS (8)
  1. ATACAND [Concomitant]
     Dosage: UNK
     Dates: start: 20050713
  2. METOPROLOL TARTRATE [Concomitant]
     Dosage: UNK
     Dates: start: 20050405
  3. PANTOPRAZOLE SODIUM [Concomitant]
     Dosage: UNK
     Dates: start: 20050504
  4. ELTROXIN [Concomitant]
     Dosage: UNK
     Dates: start: 19980504
  5. OXALIPLATIN [Suspect]
     Indication: COLON CANCER
     Route: 041
     Dates: start: 20050628, end: 20050628
  6. COLACE [Concomitant]
     Dosage: UNK
     Dates: start: 20050504
  7. BEVACIZUMAB [Suspect]
     Route: 041
     Dates: start: 20050628, end: 20050628
  8. CAPECITABINE [Suspect]
     Dosage: 2000 MG BID FOR 2 WEEKS, Q3W
     Route: 048
     Dates: start: 20050628, end: 20050712

REACTIONS (5)
  - BACTERIA URINE [None]
  - CEREBRAL ISCHAEMIA [None]
  - DIARRHOEA [None]
  - ESCHERICHIA INFECTION [None]
  - PYREXIA [None]
